FAERS Safety Report 17959383 (Version 2)
Quarter: 2020Q3

REPORT INFORMATION
  Report Type: Spontaneous
  Country: FR (occurrence: FR)
  Receive Date: 20200630
  Receipt Date: 20200713
  Transmission Date: 20201103
  Serious: Yes (Death, Life-Threatening, Other)
  Sender: FDA-Public Use
  Company Number: FR-AUROBINDO-AUR-APL-2020-031129

PATIENT
  Age: 64 Year
  Sex: Male
  Weight: 80 kg

DRUGS (27)
  1. PANTOPRAZOLE [Suspect]
     Active Substance: PANTOPRAZOLE
     Indication: PRODUCT USED FOR UNKNOWN INDICATION
     Dosage: UNK
     Route: 042
  2. AMIKACIN. [Suspect]
     Active Substance: AMIKACIN
     Indication: SEPTIC SHOCK
     Dosage: 2.5 GRAM
     Route: 042
     Dates: start: 20200326
  3. CISATRACURIUM. [Suspect]
     Active Substance: CISATRACURIUM
     Indication: SEDATIVE THERAPY
     Dosage: UNK
     Route: 042
     Dates: start: 20200323
  4. KARDEGIC [Suspect]
     Active Substance: ASPIRIN DL-LYSINE
     Indication: PROPHYLAXIS
     Dosage: UNK
     Route: 048
     Dates: start: 20200326
  5. LINEZOLID. [Suspect]
     Active Substance: LINEZOLID
     Indication: SEPTIC SHOCK
     Dosage: 600 MILLIGRAM
     Route: 042
     Dates: start: 20200326, end: 20200326
  6. RAMIPRIL. [Suspect]
     Active Substance: RAMIPRIL
     Indication: HYPERTENSION
     Dosage: UNK
     Route: 048
     Dates: start: 20200323
  7. FLUCORTAC [Suspect]
     Active Substance: FLUDROCORTISONE ACETATE
     Indication: PRODUCT USED FOR UNKNOWN INDICATION
     Dosage: UNK
     Route: 042
     Dates: start: 20200326
  8. MIDAZOLAM. [Suspect]
     Active Substance: MIDAZOLAM
     Indication: SEDATIVE THERAPY
     Dosage: UNK
     Route: 042
     Dates: start: 20200323
  9. TAHOR [Suspect]
     Active Substance: ATORVASTATIN CALCIUM
     Indication: PROPHYLAXIS
     Dosage: 1 DOSAGE FORM
     Route: 048
     Dates: start: 20200323
  10. MYFORTIC [Suspect]
     Active Substance: MYCOPHENOLATE SODIUM
     Indication: TRANSPLANT
     Dosage: 1000 MILLIGRAM
     Route: 048
     Dates: start: 20200323, end: 20200323
  11. CORDARONE [Suspect]
     Active Substance: AMIODARONE HYDROCHLORIDE
     Indication: ATRIAL FIBRILLATION
     Dosage: 1 DOSAGE FORM
     Route: 042
  12. CREON [Suspect]
     Active Substance: PANCRELIPASE AMYLASE\PANCRELIPASE LIPASE\PANCRELIPASE PROTEASE
     Indication: PANCREATIC FAILURE
     Dosage: UNK
     Route: 048
  13. ROVAMYCINE [Suspect]
     Active Substance: SPIRAMYCIN
     Indication: COVID-19 PNEUMONIA
     Dosage: 3 DOSAGE FORM
     Route: 042
     Dates: start: 20200321, end: 20200326
  14. AMLOR [Suspect]
     Active Substance: AMLODIPINE BESYLATE
     Indication: HYPERTENSION
     Dosage: UNK
     Route: 048
     Dates: start: 20200323
  15. PREDNISOLONE. [Suspect]
     Active Substance: PREDNISOLONE
     Indication: PROPHYLAXIS AGAINST TRANSPLANT REJECTION
     Dosage: 120 MILLIGRAM
     Route: 048
  16. HYDROCORTISONE. [Suspect]
     Active Substance: HYDROCORTISONE
     Indication: PRODUCT USED FOR UNKNOWN INDICATION
     Dosage: UNK
     Route: 042
     Dates: start: 20200326
  17. MYCOPHENOLATE MOFETIL. [Suspect]
     Active Substance: MYCOPHENOLATE MOFETIL
     Indication: PROPHYLAXIS AGAINST TRANSPLANT REJECTION
     Dosage: 1000 MILLIGRAM
     Route: 048
     Dates: start: 20200323
  18. PIPERACILLIN AND TAZOBACTAM [Suspect]
     Active Substance: PIPERACILLIN SODIUM\TAZOBACTAM SODIUM
     Indication: SEPTIC SHOCK
     Dosage: 1 DOSAGE FORM
     Route: 042
     Dates: start: 20200326, end: 20200326
  19. KARDEGIC [Suspect]
     Active Substance: ASPIRIN DL-LYSINE
     Indication: MYOCARDIAL ISCHAEMIA
  20. LOPINAVIR;RITONAVIR [Suspect]
     Active Substance: LOPINAVIR\RITONAVIR
     Indication: COVID-19 PNEUMONIA
     Dosage: 4 DOSAGE FORM
     Route: 048
     Dates: start: 20200323
  21. NOREPINEPHRINE BITARTRATE. [Suspect]
     Active Substance: NOREPINEPHRINE BITARTRATE
     Indication: SEPSIS
     Dosage: UNK
     Route: 042
  22. CERTICAN [Suspect]
     Active Substance: EVEROLIMUS
     Indication: TRANSPLANT
     Dosage: UNK
     Route: 048
     Dates: start: 20200323
  23. CEFTRIAXONE. [Suspect]
     Active Substance: CEFTRIAXONE
     Indication: COVID-19 PNEUMONIA
     Dosage: 1 DOSAGE FORM
     Route: 042
     Dates: start: 20200321, end: 20200326
  24. CALCIPARINE [Suspect]
     Active Substance: HEPARIN CALCIUM
     Indication: THROMBOSIS PROPHYLAXIS
     Dosage: 120 MILLIGRAM
     Route: 058
  25. INIPOMP [Suspect]
     Active Substance: PANTOPRAZOLE SODIUM
     Indication: PRODUCT USED FOR UNKNOWN INDICATION
     Dosage: UNK
     Route: 048
  26. ATORVASTATIN [Suspect]
     Active Substance: ATORVASTATIN
     Indication: DYSLIPIDAEMIA
     Dosage: 1 DOSAGE FORM
     Route: 048
  27. SUFENTANIL [Suspect]
     Active Substance: SUFENTANIL
     Indication: SEDATIVE THERAPY
     Dosage: UNK
     Route: 042
     Dates: start: 20200323

REACTIONS (6)
  - Rhabdomyolysis [Unknown]
  - COVID-19 [Fatal]
  - COVID-19 pneumonia [Fatal]
  - Septic shock [Fatal]
  - Respiratory distress [Fatal]
  - Hypertransaminasaemia [Unknown]

NARRATIVE: CASE EVENT DATE: 20200309
